FAERS Safety Report 15935918 (Version 2)
Quarter: 2025Q1

REPORT INFORMATION
  Report Type: Spontaneous
  Country: NO (occurrence: NO)
  Receive Date: 20190208
  Receipt Date: 20250227
  Transmission Date: 20250409
  Serious: Yes (Death, Life-Threatening, Hospitalization, Other)
  Sender: CELLTRION
  Company Number: NO-CELLTRION HEALTHCARE HUNGARY KFT-2015NO007966

PATIENT

DRUGS (26)
  1. INFLIXIMAB [Suspect]
     Active Substance: INFLIXIMAB
     Indication: Immunomodulatory therapy
     Route: 042
  2. INFLIXIMAB [Suspect]
     Active Substance: INFLIXIMAB
     Indication: Interstitial lung disease
  3. INFLIXIMAB [Suspect]
     Active Substance: INFLIXIMAB
     Indication: Antisynthetase syndrome
  4. AZATHIOPRINE [Suspect]
     Active Substance: AZATHIOPRINE
     Indication: Immunomodulatory therapy
     Route: 065
  5. AZATHIOPRINE [Suspect]
     Active Substance: AZATHIOPRINE
     Indication: Interstitial lung disease
  6. AZATHIOPRINE [Suspect]
     Active Substance: AZATHIOPRINE
     Indication: Antisynthetase syndrome
  7. CYCLOSPORINE [Suspect]
     Active Substance: CYCLOSPORINE
     Indication: Immunomodulatory therapy
     Route: 065
  8. CYCLOSPORINE [Suspect]
     Active Substance: CYCLOSPORINE
     Indication: Interstitial lung disease
  9. CYCLOSPORINE [Suspect]
     Active Substance: CYCLOSPORINE
     Indication: Antisynthetase syndrome
  10. CYCLOPHOSPHAMIDE [Suspect]
     Active Substance: CYCLOPHOSPHAMIDE
     Indication: Immunomodulatory therapy
     Route: 042
  11. CYCLOPHOSPHAMIDE [Suspect]
     Active Substance: CYCLOPHOSPHAMIDE
     Indication: Interstitial lung disease
  12. MYCOPHENOLATE MOFETIL [Suspect]
     Active Substance: MYCOPHENOLATE MOFETIL
     Indication: Immunomodulatory therapy
     Route: 065
  13. MYCOPHENOLATE MOFETIL [Suspect]
     Active Substance: MYCOPHENOLATE MOFETIL
     Indication: Interstitial lung disease
  14. MYCOPHENOLATE MOFETIL [Suspect]
     Active Substance: MYCOPHENOLATE MOFETIL
     Indication: Antisynthetase syndrome
  15. TACROLIMUS [Suspect]
     Active Substance: TACROLIMUS
     Indication: Immunomodulatory therapy
     Route: 065
  16. TACROLIMUS [Suspect]
     Active Substance: TACROLIMUS
     Indication: Interstitial lung disease
  17. TACROLIMUS [Suspect]
     Active Substance: TACROLIMUS
     Indication: Antisynthetase syndrome
  18. HUMAN IMMUNOGLOBULIN G [Suspect]
     Active Substance: HUMAN IMMUNOGLOBULIN G
     Indication: Immunomodulatory therapy
     Route: 042
  19. HUMAN IMMUNOGLOBULIN G [Suspect]
     Active Substance: HUMAN IMMUNOGLOBULIN G
     Indication: Interstitial lung disease
  20. HUMAN IMMUNOGLOBULIN G [Suspect]
     Active Substance: HUMAN IMMUNOGLOBULIN G
     Indication: Antisynthetase syndrome
  21. RITUXIMAB [Suspect]
     Active Substance: RITUXIMAB
     Indication: Antisynthetase syndrome
     Dosage: 375 MG/M2, WEEKLY (4 X 375 MG/M2)Y
     Route: 042
  22. UNSPECIFIED INGREDIENT [Suspect]
     Active Substance: UNSPECIFIED INGREDIENT
     Indication: Product used for unknown indication
     Route: 065
  23. PREDNISOLONE [Suspect]
     Active Substance: PREDNISOLONE
     Indication: Product used for unknown indication
  24. CYCLOPHOSPHAMIDE [Suspect]
     Active Substance: CYCLOPHOSPHAMIDE
     Indication: Antisynthetase syndrome
     Route: 042
  25. OCTAGAM IMMUNE GLOBULIN (HUMAN) [Suspect]
     Active Substance: HUMAN IMMUNOGLOBULIN G
     Indication: Immunomodulatory therapy
     Route: 042
  26. OCTAGAM IMMUNE GLOBULIN (HUMAN) [Suspect]
     Active Substance: HUMAN IMMUNOGLOBULIN G
     Indication: Antisynthetase syndrome

REACTIONS (7)
  - Mental disorder [Fatal]
  - Pneumocystis jirovecii infection [Fatal]
  - Abscess [Unknown]
  - Pneumocystis jirovecii pneumonia [Fatal]
  - Off label use [Fatal]
  - Product use in unapproved indication [Fatal]
  - Intentional product use issue [Fatal]
